FAERS Safety Report 20048657 (Version 4)
Quarter: 2022Q4

REPORT INFORMATION
  Report Type: Spontaneous
  Country: DE (occurrence: DE)
  Receive Date: 20211109
  Receipt Date: 20221222
  Transmission Date: 20230112
  Serious: Yes (Hospitalization, Other)
  Sender: FDA-Public Use
  Company Number: DE-ADRED-06825-01

PATIENT
  Age: 73 Year
  Sex: Female
  Weight: 60 kg

DRUGS (24)
  1. VALSARTAN [Suspect]
     Active Substance: VALSARTAN
     Indication: Product used for unknown indication
     Dosage: 80 MILLIGRAM, BID (80 MG, 1-0-1-0)
     Route: 065
  2. VALSARTAN [Suspect]
     Active Substance: VALSARTAN
     Dosage: 160 MILLIGRAM, QD, 80 MILLIGRAM, BID (1-0-1-0)
     Route: 065
  3. TORSEMIDE [Suspect]
     Active Substance: TORSEMIDE
     Indication: Product used for unknown indication
     Dosage: 5 MILLIGRAM (5 MG, 2-1-0-0)
     Route: 065
  4. PANTOPRAZOLE [Suspect]
     Active Substance: PANTOPRAZOLE
     Indication: Product used for unknown indication
     Dosage: 40 MILLIGRAM, QD (40 MG, 1-0-0-0)
     Route: 065
  5. ALLOPURINOL [Suspect]
     Active Substance: ALLOPURINOL
     Indication: Product used for unknown indication
     Dosage: 300 MILLIGRAM, QD (300 MG, 0-1-0-0)
     Route: 065
  6. TROSPIUM [Suspect]
     Active Substance: TROSPIUM
     Indication: Product used for unknown indication
     Dosage: 60 MILLIGRAM, QD (60 MG, 1-0-0-0)
     Route: 065
  7. METAMIZOLE [Suspect]
     Active Substance: METAMIZOLE
     Indication: Product used for unknown indication
     Dosage: 500 MILLIGRAM, QID (500 MG, 1-1-1-1)
     Route: 065
  8. METAMIZOLE [Suspect]
     Active Substance: METAMIZOLE
     Dosage: 2000 MILLIGRAM, QD, 500 MILLIGRAM, QID (1-1-1-1)
     Route: 065
  9. NALOXONE HYDROCHLORIDE\TILIDINE HYDROCHLORIDE [Suspect]
     Active Substance: NALOXONE HYDROCHLORIDE\TILIDINE HYDROCHLORIDE
     Indication: Product used for unknown indication
     Dosage: UNK, BID/ 50|4 MG, 1-0-0-1
     Route: 065
  10. NALOXONE HYDROCHLORIDE\TILIDINE HYDROCHLORIDE [Suspect]
     Active Substance: NALOXONE HYDROCHLORIDE\TILIDINE HYDROCHLORIDE
     Dosage: UNK UNK, QD, 50/4 MILLIGRAM, BID (1-0-0-1)
     Route: 065
  11. APIXABAN [Suspect]
     Active Substance: APIXABAN
     Indication: Product used for unknown indication
     Dosage: 5 MILLIGRAM, BID (5 MG, 1-0-1-0)
     Route: 065
  12. APIXABAN [Suspect]
     Active Substance: APIXABAN
     Dosage: 10 MILLIGRAM, QD, 5 MILLIGRAM, BID (1-0-1-0
     Route: 048
  13. FOLIC ACID [Suspect]
     Active Substance: FOLIC ACID
     Indication: Product used for unknown indication
     Dosage: 0.4 MILLIGRAM, QD (0.4 MG, 1-0-0-0)
     Route: 065
  14. FOLIC ACID [Suspect]
     Active Substance: FOLIC ACID
     Dosage: 40 MILLIGRAM, QD ( 1-0-0-0 )
     Route: 065
  15. POTASSIUM CITRATE [Suspect]
     Active Substance: POTASSIUM CITRATE
     Indication: Product used for unknown indication
     Dosage: 4.5 GRAM, BID (4.5 G, 1-0-1-0)
     Route: 065
  16. POTASSIUM CITRATE [Suspect]
     Active Substance: POTASSIUM CITRATE
     Dosage: 4.5 MILLIGRAM, BID
     Route: 065
  17. POTASSIUM CITRATE [Suspect]
     Active Substance: POTASSIUM CITRATE
     Dosage: 9 GRAM, QD, 4.5 GRAM, BID (1-0-1-0)
     Route: 065
  18. CHOLECALCIFEROL [Suspect]
     Active Substance: CHOLECALCIFEROL
     Indication: Product used for unknown indication
     Dosage: 1000 INTERNATIONAL UNIT, QD (1000 IE, 1-0-0-0)
     Route: 065
  19. ALISKIREN\HYDROCHLOROTHIAZIDE [Suspect]
     Active Substance: ALISKIREN\HYDROCHLOROTHIAZIDE
     Indication: Product used for unknown indication
     Dosage: 12.5 MILLIGRAM, BID (12.5 MG, 1-0-1-0)
     Route: 065
  20. POLYETHYLENE GLYCOLS [Suspect]
     Active Substance: POLYETHYLENE GLYCOLS
     Indication: Product used for unknown indication
     Dosage: 13.8 GRAM, QD (13.8 G, 1-0-0-0)
     Route: 065
  21. POLYETHYLENE GLYCOLS [Suspect]
     Active Substance: POLYETHYLENE GLYCOLS
     Dosage: 13.8 MILLIGRAM, QD (13.8 MG, 1-0-0-0)
     Route: 065
  22. HYDROMORPHONE HYDROCHLORIDE\NALOXONE HYDROCHLORIDE [Suspect]
     Active Substance: HYDROMORPHONE HYDROCHLORIDE\NALOXONE HYDROCHLORIDE
     Indication: Product used for unknown indication
     Dosage: 1.3 MILLIGRAM, PRN, 1.3 MG, AS NEEDED
     Route: 065
  23. ALISKIREN\HYDROCHLOROTHIAZIDE [Concomitant]
     Active Substance: ALISKIREN\HYDROCHLOROTHIAZIDE
     Dosage: 25 MILLIGRAM, QD, 12.5 MILLIGRAM, BID (1-0-1-0)
     Route: 065
  24. HYDROCHLOROTHIAZIDE [Concomitant]
     Active Substance: HYDROCHLOROTHIAZIDE
     Dosage: 25 MILLIGRAM, QD, 12.5 MG, 1-0-1-0
     Route: 065

REACTIONS (3)
  - Dementia [Unknown]
  - Dizziness [Unknown]
  - Haematochezia [Unknown]
